FAERS Safety Report 5941796-7 (Version None)
Quarter: 2008Q4

REPORT INFORMATION
  Report Type: 
  Country: None (occurrence: None)
  Receive Date: 20081105
  Receipt Date: 20081030
  Transmission Date: 20090506
  Serious: Yes (Other)
  Sender: FDA-Public Use
  Company Number: PHEH2008US09794

PATIENT
  Sex: Female

DRUGS (4)
  1. RECLAST [Suspect]
     Dosage: UNK
     Dates: start: 20080814
  2. METOPROLOL TARTRATE [Suspect]
     Indication: HYPERTENSION
  3. COREG [Concomitant]
  4. IMDUR [Concomitant]
     Indication: CARDIAC DISORDER

REACTIONS (4)
  - FOOD INTOLERANCE [None]
  - INFECTION [None]
  - RASH [None]
  - URTICARIA [None]
